FAERS Safety Report 21442279 (Version 1)
Quarter: 2022Q4

REPORT INFORMATION
  Report Type: Spontaneous
  Country: US (occurrence: US)
  Receive Date: 20221011
  Receipt Date: 20221011
  Transmission Date: 20230113
  Serious: No
  Sender: FDA-Public Use
  Company Number: US-Sprout Pharmaceuticals, Inc.-2021SP000304

PATIENT
  Age: 54 Year
  Sex: Female
  Weight: 81.720 kg

DRUGS (2)
  1. ADDYI [Suspect]
     Active Substance: FLIBANSERIN
     Indication: Libido decreased
     Route: 048
     Dates: start: 202102, end: 202108
  2. ADDYI [Suspect]
     Active Substance: FLIBANSERIN
     Indication: Menopause

REACTIONS (5)
  - Therapeutic response unexpected [Unknown]
  - Intentional product misuse [Unknown]
  - Alcohol use [Unknown]
  - Drug ineffective for unapproved indication [Not Recovered/Not Resolved]
  - Drug ineffective for unapproved indication [Recovered/Resolved]

NARRATIVE: CASE EVENT DATE: 20210101
